FAERS Safety Report 22621068 (Version 1)
Quarter: 2023Q2

REPORT INFORMATION
  Report Type: Spontaneous
  Country: US (occurrence: US)
  Receive Date: 20230620
  Receipt Date: 20230620
  Transmission Date: 20230721
  Serious: No
  Sender: FDA-Public Use
  Company Number: US-PFIZER INC-202200318928

PATIENT
  Age: 62 Year
  Sex: Male

DRUGS (1)
  1. XELJANZ [Suspect]
     Active Substance: TOFACITINIB CITRATE
     Indication: Alopecia
     Dosage: 10 MG, 1X/DAY
     Dates: start: 20220202

REACTIONS (2)
  - Neck pain [Unknown]
  - Off label use [Unknown]

NARRATIVE: CASE EVENT DATE: 20220202
